FAERS Safety Report 5385747-5 (Version None)
Quarter: 2007Q3

REPORT INFORMATION
  Report Type: 
  Country: None (occurrence: None)
  Receive Date: 20070712
  Receipt Date: 20070704
  Transmission Date: 20080115
  Serious: Yes (Hospitalization)
  Sender: FDA-Public Use
  Company Number: BE-PFIZER INC-2007054801

PATIENT
  Sex: Male

DRUGS (3)
  1. VFEND [Suspect]
  2. SIMVASTATIN [Concomitant]
  3. CYCLOSPORINE [Concomitant]

REACTIONS (2)
  - RENAL FAILURE ACUTE [None]
  - RHABDOMYOLYSIS [None]
